FAERS Safety Report 4975596-1 (Version None)
Quarter: 2006Q2

REPORT INFORMATION
  Report Type: 
  Country: None (occurrence: None)
  Receive Date: 20060410
  Receipt Date: 20060331
  Transmission Date: 20061013
  Serious: Yes (Hospitalization)
  Sender: FDA-Public Use
  Company Number: 20062867

PATIENT
  Age: 74 Year
  Sex: Female

DRUGS (5)
  1. LIORESAL  INTRATHECAL ( BACLOFEN TINJECTION) [Suspect]
     Indication: MUSCLE SPASTICITY
     Dosage: DAILY, INTRATHECAL
     Route: 037
  2. TEGRETOL [Concomitant]
  3. NEURONTIN [Concomitant]
  4. DURAGESIC-100 [Concomitant]
  5. MESTINON [Concomitant]

REACTIONS (1)
  - UNEVALUABLE EVENT [None]
